FAERS Safety Report 19676593 (Version 4)
Quarter: 2021Q3

REPORT INFORMATION
  Report Type: Report from Study
  Country: DE (occurrence: DE)
  Receive Date: 20210809
  Receipt Date: 20210920
  Transmission Date: 20211014
  Serious: Yes (Hospitalization)
  Sender: FDA-Public Use
  Company Number: DE-MYLANLABS-2021M1048551

PATIENT
  Age: 52 Year
  Sex: Female
  Weight: 82 kg

DRUGS (17)
  1. AMLODIPINE [Concomitant]
     Active Substance: AMLODIPINE BESYLATE
     Dosage: 5 MILLIGRAM, QD (5 MG, QPM)
  2. TRASTUZUMAB. [Suspect]
     Active Substance: TRASTUZUMAB
     Indication: HER2 POSITIVE BREAST CANCER
     Dosage: 8 MILLIGRAM/KILOGRAM, TOTAL (8 MG/KG, SINGLE)
     Route: 042
     Dates: start: 20210115
  3. TUCATINIB [Suspect]
     Active Substance: TUCATINIB
     Indication: HER2 POSITIVE BREAST CANCER
     Dosage: 150 MILLIGRAM, QD
     Route: 048
     Dates: start: 20210115, end: 20210205
  4. LIXIANA [Concomitant]
     Active Substance: EDOXABAN TOSYLATE
     Dosage: 60 MILLIGRAM, QD (60 MG, QD)
  5. TORSEMIDE. [Concomitant]
     Active Substance: TORSEMIDE
     Dosage: 5 MILLIGRAM, QD (5 MG, QD)
  6. TRASTUZUMAB. [Suspect]
     Active Substance: TRASTUZUMAB
     Dosage: 6 MILLIGRAM/KILOGRAM, Q3W 6 MG/KG, Q3WEEKS)
     Route: 042
  7. TRASTUZUMAB. [Suspect]
     Active Substance: TRASTUZUMAB
     Dosage: 600 MILLIGRAM, Q3W
     Route: 058
     Dates: start: 20210115, end: 20210226
  8. TUCATINIB [Suspect]
     Active Substance: TUCATINIB
     Dosage: 600 MILLIGRAM, QD (300 MG, BID)
     Route: 048
  9. TILIDINE [Concomitant]
     Active Substance: TILIDINE
     Dosage: 4 MILLIGRAM (4 MG, AS NEEDED)
  10. L THYROXIN [Concomitant]
     Active Substance: LEVOTHYROXINE SODIUM
     Dosage: 300 MICROGRAM, QD (150 ?G, BID)
  11. BISOPROLOL [Concomitant]
     Active Substance: BISOPROLOL
     Dosage: 10 MILLIGRAM, QD (5 MG, BID)
  12. PANTROZOLE [Concomitant]
     Dosage: 40 MILLIGRAM (40 MG AS NEEDED)
  13. CAPECITABINE. [Suspect]
     Active Substance: CAPECITABINE
     Indication: HER2 POSITIVE BREAST CANCER
     Dosage: 2000 MILLIGRAM/SQ. METER, QD (1000 MG/M2, BID)
     Route: 048
     Dates: start: 20210115
  14. VITAMIN B [Concomitant]
     Active Substance: VITAMIN B
     Dosage: 620 MILLIGRAM, QD (620 MG, QD)
  15. ZOPICLONE [Concomitant]
     Active Substance: ZOPICLONE
     Dosage: 7.5 MILLIGRAM
  16. DENOSUMAB [Concomitant]
     Active Substance: DENOSUMAB
     Dosage: Q4WEEKS
     Route: 058
     Dates: start: 201901
  17. NOVALGIN                           /00169801/ [Concomitant]
     Active Substance: ACETAMINOPHEN\CAFFEINE\PROPYPHENAZONE
     Dosage: 50 MILLIGRAM (50 MG, AS NEEDED)

REACTIONS (2)
  - Infection [Recovered/Resolved]
  - Hepatotoxicity [Recovering/Resolving]

NARRATIVE: CASE EVENT DATE: 20210205
